FAERS Safety Report 5534582-3 (Version None)
Quarter: 2007Q4

REPORT INFORMATION
  Report Type: 
  Country: None (occurrence: None)
  Receive Date: 20071204
  Receipt Date: 20071204
  Transmission Date: 20080405
  Serious: Yes (Life-Threatening, Hospitalization, Other)
  Sender: FDA-Public Use
  Company Number: None

PATIENT
  Age: 49 Year
  Sex: Female
  Weight: 81.6475 kg

DRUGS (1)
  1. LEVAQUIN [Suspect]
     Indication: SINUSITIS
     Dosage: ONCE DAILY  PO
     Route: 048
     Dates: start: 20071130, end: 20071130

REACTIONS (4)
  - DIZZINESS [None]
  - HEART RATE INCREASED [None]
  - THROAT TIGHTNESS [None]
  - URTICARIA [None]
